FAERS Safety Report 18002093 (Version 2)
Quarter: 2022Q3

REPORT INFORMATION
  Report Type: Spontaneous
  Country: NZ (occurrence: None)
  Receive Date: 20200709
  Receipt Date: 20220816
  Transmission Date: 20221027
  Serious: Yes (Death, Hospitalization, Other)
  Sender: FDA-Public Use
  Company Number: 2020SE84899

PATIENT
  Age: 82 Year
  Sex: Female

DRUGS (2)
  1. GEFITINIB [Suspect]
     Active Substance: GEFITINIB
     Indication: Lung neoplasm malignant
     Dosage: UNKNOWN
     Route: 048
  2. OSIMERTINIB [Suspect]
     Active Substance: OSIMERTINIB
     Indication: Metastases to meninges
     Route: 048

REACTIONS (8)
  - Illness [Fatal]
  - Malignant neoplasm progression [Not Recovered/Not Resolved]
  - Metastases to meninges [Unknown]
  - Somnolence [Unknown]
  - Speech disorder [Unknown]
  - Dysphagia [Unknown]
  - Fatigue [Unknown]
  - Asthenia [Unknown]
